FAERS Safety Report 13795637 (Version 1)
Quarter: 2017Q3

REPORT INFORMATION
  Report Type: Spontaneous
  Country: BE (occurrence: BE)
  Receive Date: 20170726
  Receipt Date: 20170726
  Transmission Date: 20171127
  Serious: Yes (Disabling, Other)
  Sender: FDA-Public Use
  Company Number: BE-VISTAPHARM, INC.-VER201707-000231

PATIENT
  Age: 40 Year
  Sex: Male

DRUGS (1)
  1. METHADONE [Suspect]
     Active Substance: METHADONE HYDROCHLORIDE

REACTIONS (4)
  - Apallic syndrome [Not Recovered/Not Resolved]
  - Leukoencephalopathy [Unknown]
  - Toxicity to various agents [Unknown]
  - Quadriparesis [Unknown]
